FAERS Safety Report 7404024-1 (Version None)
Quarter: 2011Q2

REPORT INFORMATION
  Report Type: 
  Country: None (occurrence: None)
  Receive Date: 20110408
  Receipt Date: 20110404
  Transmission Date: 20111010
  Serious: Yes (Hospitalization)
  Sender: FDA-Public Use
  Company Number: JP-ABBOTT-11P-087-0717332-00

PATIENT
  Age: 34 Year
  Sex: Female

DRUGS (10)
  1. IBRUPROFEN [Concomitant]
     Indication: LYMPHADENOPATHY
  2. IBRUPROFEN [Concomitant]
     Indication: PYREXIA
     Route: 048
     Dates: start: 20110124, end: 20110127
  3. CLARITH TABLETS [Suspect]
     Indication: LYMPHADENOPATHY
  4. LAMICTAL [Suspect]
     Indication: EPILEPSY
     Route: 048
  5. ASCOMP [Concomitant]
     Indication: LYMPHADENOPATHY
  6. RIZE [Concomitant]
     Indication: PRODUCT USED FOR UNKNOWN INDICATION
  7. SERTRALINE HYDROCHLORIDE [Concomitant]
     Indication: PRODUCT USED FOR UNKNOWN INDICATION
  8. CLARITH TABLETS [Suspect]
     Indication: PYREXIA
     Route: 048
     Dates: start: 20110124, end: 20110127
  9. ASCOMP [Concomitant]
     Indication: PYREXIA
     Route: 048
     Dates: start: 20110124, end: 20110127
  10. PERPHENAZINE [Concomitant]
     Indication: PRODUCT USED FOR UNKNOWN INDICATION

REACTIONS (1)
  - ERYTHEMA [None]
